FAERS Safety Report 10338920 (Version 1)
Quarter: 2014Q3

REPORT INFORMATION
  Report Type: Spontaneous
  Country: CA (occurrence: CA)
  Receive Date: 20140724
  Receipt Date: 20140724
  Transmission Date: 20150326
  Serious: Yes (Other)
  Sender: FDA-Public Use
  Company Number: CA-ALLERGAN-1416401US

PATIENT
  Age: 91 Year
  Sex: Female

DRUGS (10)
  1. ALPHAGAN P [Suspect]
     Active Substance: BRIMONIDINE TARTRATE
     Indication: PRODUCT USED FOR UNKNOWN INDICATION
     Route: 047
  2. VITAMIN D3 [Concomitant]
     Active Substance: CHOLECALCIFEROL
  3. ASA [Concomitant]
     Active Substance: ASPIRIN
  4. LATANOPROST. [Concomitant]
     Active Substance: LATANOPROST
     Route: 047
  5. NORVASC [Concomitant]
     Active Substance: AMLODIPINE BESYLATE
  6. TYLENOL [Concomitant]
     Active Substance: ACETAMINOPHEN
  7. VITAMIN C [Concomitant]
     Active Substance: ASCORBIC ACID
  8. OMEGA 3 [Concomitant]
     Active Substance: OMEGA-3 FATTY ACIDS
  9. CALCIUM [Concomitant]
     Active Substance: CALCIUM
  10. MICARDIS [Concomitant]
     Active Substance: TELMISARTAN

REACTIONS (2)
  - Blood pressure increased [Recovered/Resolved]
  - Headache [Recovered/Resolved]
